FAERS Safety Report 5950542-2 (Version None)
Quarter: 2008Q4

REPORT INFORMATION
  Report Type: 
  Country: None (occurrence: None)
  Receive Date: 20081022
  Receipt Date: 20080606
  Transmission Date: 20090506
  Serious: No
  Sender: FDA-Public Use
  Company Number: ALL1-2008-01720

PATIENT
  Age: 48 Year
  Sex: Male
  Weight: 100.7 kg

DRUGS (4)
  1. VYVANSE [Suspect]
     Indication: ATTENTION DEFICIT/HYPERACTIVITY DISORDER
     Dosage: 30 MG, 1X/DAY: QD, ORAL; 50 MG, 1X/DAY: QD, ORAL
     Route: 048
     Dates: start: 20080414, end: 20080501
  2. VYVANSE [Suspect]
     Indication: ATTENTION DEFICIT/HYPERACTIVITY DISORDER
     Dosage: 30 MG, 1X/DAY: QD, ORAL; 50 MG, 1X/DAY: QD, ORAL
     Route: 048
     Dates: start: 20080501
  3. SYNTHROID [Concomitant]
  4. HYZAAR / 01284801/ (HYDROCHLOROTHIAZIDE, LOSARTAN  POTASSIUM) [Concomitant]

REACTIONS (6)
  - ALOPECIA [None]
  - ANGER [None]
  - ANXIETY [None]
  - DISTURBANCE IN ATTENTION [None]
  - HAIR TEXTURE ABNORMAL [None]
  - MOOD SWINGS [None]
